FAERS Safety Report 5520249-4 (Version None)
Quarter: 2007Q4

REPORT INFORMATION
  Report Type: 
  Country: None (occurrence: None)
  Receive Date: 20071117
  Receipt Date: 20071029
  Transmission Date: 20080405
  Serious: Yes (Death, Hospitalization)
  Sender: FDA-Public Use
  Company Number: PHHO2007US15776

PATIENT
  Age: 69 Year
  Sex: Female
  Weight: 59.41 kg

DRUGS (1)
  1. ALDESLEUKIN [Suspect]
     Indication: METASTATIC RENAL CELL CARCINOMA

REACTIONS (12)
  - ALANINE AMINOTRANSFERASE INCREASED [None]
  - ASPARTATE AMINOTRANSFERASE INCREASED [None]
  - ASTHENIA [None]
  - BLOOD ALKALINE PHOSPHATASE ABNORMAL [None]
  - CARDIO-RESPIRATORY ARREST [None]
  - DIARRHOEA [None]
  - HEPATIC FAILURE [None]
  - HYPERBILIRUBINAEMIA [None]
  - MALIGNANT NEOPLASM PROGRESSION [None]
  - METASTASES TO LIVER [None]
  - NAUSEA [None]
  - RENAL FAILURE [None]
